FAERS Safety Report 10159516 (Version 1)
Quarter: 2014Q2

REPORT INFORMATION
  Report Type: Spontaneous
  Country: US (occurrence: US)
  Receive Date: 20140508
  Receipt Date: 20140508
  Transmission Date: 20141212
  Serious: No
  Sender: FDA-Public Use
  Company Number: US-BAYER-2014-067744

PATIENT
  Sex: Male

DRUGS (1)
  1. GADAVIST [Suspect]
     Dosage: 3 ML, ONCE
     Route: 042
     Dates: start: 20140417, end: 20140417

REACTIONS (2)
  - Nausea [Recovered/Resolved]
  - Vomiting [Recovered/Resolved]
